FAERS Safety Report 11411496 (Version 1)
Quarter: 2015Q3

REPORT INFORMATION
  Report Type: Spontaneous
  Country: US (occurrence: US)
  Receive Date: 20150821
  Receipt Date: 20150821
  Transmission Date: 20151125
  Serious: No
  Sender: FDA-Public Use
  Company Number: US-ELI_LILLY_AND_COMPANY-US201008000975

PATIENT
  Sex: Male

DRUGS (8)
  1. HUMULIN R [Suspect]
     Active Substance: INSULIN HUMAN
     Dosage: 20 U, UNKNOWN
  2. HUMULIN R [Suspect]
     Active Substance: INSULIN HUMAN
     Dosage: 20 U, UNKNOWN
  3. HUMULIN N [Suspect]
     Active Substance: INSULIN HUMAN
     Indication: DIABETES MELLITUS
     Dosage: 15 U, UNKNOWN
  4. HUMULIN N [Suspect]
     Active Substance: INSULIN HUMAN
     Dosage: 15 U, UNKNOWN
  5. HUMULIN R [Suspect]
     Active Substance: INSULIN HUMAN
     Dosage: 20 U, UNKNOWN
  6. HUMULIN N [Suspect]
     Active Substance: INSULIN HUMAN
     Dosage: 15 U, UNKNOWN
  7. HUMULIN N [Suspect]
     Active Substance: INSULIN HUMAN
     Dosage: 15 U, UNKNOWN
  8. HUMULIN R [Suspect]
     Active Substance: INSULIN HUMAN
     Indication: DIABETES MELLITUS
     Dosage: 20 U, UNKNOWN

REACTIONS (5)
  - Blood glucose decreased [Unknown]
  - Blood glucose increased [Unknown]
  - Sleep disorder [Unknown]
  - Feeling hot [Unknown]
  - Therapeutic response decreased [Unknown]
